FAERS Safety Report 23116101 (Version 1)
Quarter: 2023Q4

REPORT INFORMATION
  Report Type: Report from Study
  Country: CA (occurrence: CA)
  Receive Date: 20231027
  Receipt Date: 20231027
  Transmission Date: 20240109
  Serious: Yes (Hospitalization)
  Sender: FDA-Public Use
  Company Number: CA-PFIZER INC-202300348106

PATIENT
  Age: 26 Year
  Sex: Male

DRUGS (5)
  1. RITUXIMAB [Suspect]
     Active Substance: RITUXIMAB
     Indication: Infective myositis
     Dosage: 1000 MG
     Route: 058
  2. RITUXIMAB [Suspect]
     Active Substance: RITUXIMAB
     Indication: Infective myositis
     Dosage: 1000 MG
     Route: 042
  3. ACETAMINOPHEN [Concomitant]
     Active Substance: ACETAMINOPHEN
     Dosage: 650 MG
     Route: 048
  4. DIPHENHYDRAMINE\ZINC ACETATE [Concomitant]
     Active Substance: DIPHENHYDRAMINE\ZINC ACETATE
     Dosage: 50 MG
     Route: 048
  5. METHYLPREDNISOLONE [Concomitant]
     Active Substance: METHYLPREDNISOLONE
     Dosage: 100 MG
     Route: 042

REACTIONS (4)
  - Cough [Recovered/Resolved]
  - Tachycardia [Recovered/Resolved]
  - Tooth infection [Recovered/Resolved]
  - Off label use [Unknown]
